FAERS Safety Report 7810591-6 (Version None)
Quarter: 2011Q4

REPORT INFORMATION
  Report Type: 
  Country: None (occurrence: None)
  Receive Date: 20111013
  Receipt Date: 20111004
  Transmission Date: 20120403
  Serious: Yes (Hospitalization)
  Sender: FDA-Public Use
  Company Number: US-BIOGENIDEC-2011BI027056

PATIENT
  Age: 40 Year
  Sex: Female

DRUGS (1)
  1. TYSABRI [Suspect]
     Indication: MULTIPLE SCLEROSIS
     Route: 042
     Dates: start: 20090318

REACTIONS (10)
  - SINUSITIS [None]
  - MULTIPLE SCLEROSIS RELAPSE [None]
  - DYSGRAPHIA [None]
  - PNEUMONIA PRIMARY ATYPICAL [None]
  - RESPIRATORY TRACT INFECTION BACTERIAL [None]
  - URINARY TRACT INFECTION [None]
  - BRONCHITIS [None]
  - INFLUENZA [None]
  - VIRAL INFECTION [None]
  - MALAISE [None]
